FAERS Safety Report 7698870-7 (Version None)
Quarter: 2011Q3

REPORT INFORMATION
  Report Type: 
  Country: None (occurrence: None)
  Receive Date: 20110819
  Receipt Date: 20110811
  Transmission Date: 20111222
  Serious: Yes (Hospitalization, Other)
  Sender: FDA-Public Use
  Company Number: PHEH2010US03844

PATIENT
  Sex: Male

DRUGS (53)
  1. ALBUTEROL SULFATE AUTOHALER [Concomitant]
     Route: 048
  2. PENICILLIN VK [Concomitant]
     Route: 048
  3. KEFZOL [Concomitant]
     Route: 042
  4. MOMETASONE FUROATE [Concomitant]
  5. TRAZODONE HYDROCHLORIDE [Concomitant]
     Dosage: 2 DF, QHS
     Route: 048
  6. FLUNISOLIDE [Concomitant]
  7. CHLORPHENIRAMINE MALEATE [Concomitant]
  8. AMOXICILLIN [Concomitant]
     Dosage: 1 DF, Q8H
     Route: 048
  9. ACYCLOVIR [Concomitant]
     Dosage: 1 DF, Q4H
     Route: 048
  10. FLUCONAZOLE [Concomitant]
  11. WARFARIN SODIUM [Concomitant]
     Dosage: 1 DF, QHS
     Route: 048
  12. DICLOFENAC SODIUM [Concomitant]
     Dosage: 1 DF, BID
     Route: 048
  13. TEMAZEPAM [Concomitant]
     Dosage: 30 MG, QD
     Route: 048
  14. HYDROCHLOROTHIAZIDE [Concomitant]
  15. QUETIAPINE FUMARATE [Concomitant]
     Dosage: 1.5 DF, QHS
     Route: 048
  16. HYDROMORPHONE HCL [Concomitant]
     Dosage: 4 MG, QID
     Route: 048
  17. LIDOCAINE [Concomitant]
  18. DILAUDID [Suspect]
  19. CLINDAMYCIN [Concomitant]
     Route: 042
  20. IBUPROFEN [Concomitant]
  21. LEVOTHYROXINE SODIUM [Concomitant]
     Dosage: 1 DF, QD
     Route: 048
  22. PREDNISONE [Concomitant]
  23. BORTEZOMIB [Concomitant]
     Route: 042
  24. SALSALATE [Concomitant]
     Dosage: 1 DF, TID
     Route: 048
  25. FELODIPINE [Concomitant]
     Dosage: 1 DF, QD
     Route: 048
  26. TRIMETHOPRIM [Concomitant]
  27. CROMOLYN SODIUM [Concomitant]
     Dosage: 2 DRP, QID
  28. CYCLOBENZAPRINE HYDROCHLORIDE [Concomitant]
     Dosage: 1 DF, TID
     Route: 048
  29. RANITIDINE HYDROCHLORIDE [Concomitant]
     Dosage: 1 DF, BID
     Route: 048
  30. ZOMETA [Suspect]
     Dosage: 4 MG, QMO
  31. SULFAMETHOXAZOLE [Concomitant]
     Route: 048
  32. OMEPRAZOLE [Concomitant]
     Dosage: 20 MG, BID
     Route: 048
  33. INDOMETHACIN [Concomitant]
  34. PERCOCET [Concomitant]
  35. OXYCODONE HYDROCHLORIDE [Concomitant]
     Dosage: 1 DF, BID
     Route: 048
  36. PROCHLORPERAZINE MALEATE [Concomitant]
     Dosage: 2 DF, TID
     Route: 048
  37. MULTI-VITAMINS [Concomitant]
     Route: 048
  38. ZESTRIL [Concomitant]
  39. LEVETIRACETAM [Concomitant]
     Dosage: 4 DF, BID
     Route: 048
  40. ACETAMINOPHEN [Concomitant]
  41. DIPHENHYDRAMINE HYDROCHLORIDE [Concomitant]
     Dosage: 1 DF, Q6H
     Route: 048
  42. CARISOPRODOL [Concomitant]
     Dosage: 1 DF, QID
  43. VENLAFAXINE HYDROCHLORIDE [Concomitant]
     Dosage: 1 DF, QHS
     Route: 048
  44. ZOLOFT [Concomitant]
  45. CODEINE SULFATE [Concomitant]
  46. AMPICILLIN SODIUM [Concomitant]
     Route: 042
  47. CHLORHEXIDINE GLUCONATE [Concomitant]
  48. GABAPENTIN [Concomitant]
     Dosage: 1 DF, QHS
     Route: 048
  49. ENOXAPARIN [Concomitant]
  50. METHOCARBAMOL [Concomitant]
     Dosage: 1 DF, TID
     Route: 048
  51. DARBEPOETIN ALFA [Concomitant]
     Route: 058
  52. SOMA [Concomitant]
     Dosage: 350 MG, TID
  53. MAALOX [Concomitant]

REACTIONS (59)
  - INFECTION [None]
  - DEFORMITY [None]
  - INJURY [None]
  - NAUSEA [None]
  - VOMITING [None]
  - HERPES SIMPLEX [None]
  - NECK PAIN [None]
  - DEPRESSION [None]
  - HYPERSENSITIVITY [None]
  - DIARRHOEA [None]
  - SPINAL OSTEOARTHRITIS [None]
  - SINUS ARRHYTHMIA [None]
  - HEPATITIS C [None]
  - HYPERTENSION [None]
  - CARPAL TUNNEL SYNDROME [None]
  - ARTHRALGIA [None]
  - CONSTIPATION [None]
  - OSTEOARTHRITIS [None]
  - CERVICOBRACHIAL SYNDROME [None]
  - PAIN IN EXTREMITY [None]
  - PRESBYOPIA [None]
  - SPONDYLOLISTHESIS [None]
  - SINUS BRADYCARDIA [None]
  - STRESS [None]
  - HEADACHE [None]
  - DRY EYE [None]
  - RIB FRACTURE [None]
  - EXPOSED BONE IN JAW [None]
  - COUGH [None]
  - ARTHRITIS [None]
  - OBESITY [None]
  - OSTEONECROSIS OF JAW [None]
  - AMYLOIDOSIS [None]
  - ACTINOMYCOSIS [None]
  - SWELLING FACE [None]
  - PHYSICAL DISABILITY [None]
  - BACK PAIN [None]
  - PHARYNGITIS [None]
  - EAR PAIN [None]
  - MACROGLOSSIA [None]
  - OSTEOPENIA [None]
  - JOINT SWELLING [None]
  - CONVULSION [None]
  - HYPOTHYROIDISM [None]
  - MUSCLE SPASMS [None]
  - NEUROPATHY PERIPHERAL [None]
  - PAIN [None]
  - ADRENAL INSUFFICIENCY [None]
  - DYSPNOEA [None]
  - ADJUSTMENT DISORDER [None]
  - HEPATITIS B [None]
  - MULTIPLE MYELOMA [None]
  - INSOMNIA [None]
  - ANAEMIA [None]
  - INGUINAL HERNIA [None]
  - DIZZINESS [None]
  - DEEP VEIN THROMBOSIS POSTOPERATIVE [None]
  - CATARACT [None]
  - CONJUNCTIVITIS ALLERGIC [None]
